FAERS Safety Report 6886977-3 (Version None)
Quarter: 2010Q3

REPORT INFORMATION
  Report Type: 
  Country: None (occurrence: None)
  Receive Date: 20100730
  Receipt Date: 20100726
  Transmission Date: 20110219
  Serious: Yes (Life-Threatening)
  Sender: FDA-Public Use
  Company Number: FR-ASTRAZENECA-2010SE34733

PATIENT
  Age: 81 Year
  Sex: Male

DRUGS (11)
  1. NEXIUM [Suspect]
     Route: 048
     Dates: start: 20090901
  2. PLAVIX [Suspect]
     Route: 048
     Dates: start: 20090901
  3. KARDEGIC [Concomitant]
  4. CORVASAL [Concomitant]
  5. TEMERIT [Concomitant]
  6. LERCAN [Concomitant]
  7. XATRAL [Concomitant]
  8. TOPALGIC [Concomitant]
  9. EQUANIL [Concomitant]
  10. PARACETAMOL [Concomitant]
  11. FUNGIZONE [Concomitant]

REACTIONS (1)
  - MYOCARDIAL INFARCTION [None]
